APPROVED DRUG PRODUCT: ATENOLOL
Active Ingredient: ATENOLOL
Strength: 100MG
Dosage Form/Route: TABLET;ORAL
Application: A076907 | Product #003
Applicant: ABLE LABORATORIES INC
Approved: Jul 30, 2004 | RLD: No | RS: No | Type: DISCN